FAERS Safety Report 24911811 (Version 2)
Quarter: 2025Q1

REPORT INFORMATION
  Report Type: Spontaneous
  Country: US (occurrence: US)
  Receive Date: 20250131
  Receipt Date: 20250206
  Transmission Date: 20250408
  Serious: No
  Sender: PFIZER
  Company Number: US-PFIZER INC-202500022486

PATIENT
  Age: 70 Year
  Sex: Female

DRUGS (2)
  1. IBRANCE [Suspect]
     Active Substance: PALBOCICLIB
     Route: 048
  2. TAMOXIFEN [Suspect]
     Active Substance: TAMOXIFEN

REACTIONS (7)
  - Fatigue [Unknown]
  - Pain [Unknown]
  - Eye disorder [Unknown]
  - Memory impairment [Unknown]
  - Off label use [Unknown]
  - Product use issue [Unknown]
  - Constipation [Unknown]
